FAERS Safety Report 12499874 (Version 1)
Quarter: 2016Q2

REPORT INFORMATION
  Report Type: Spontaneous
  Country: US (occurrence: None)
  Receive Date: 20160624
  Receipt Date: 20160624
  Transmission Date: 20160815
  Serious: Yes (Hospitalization)
  Sender: FDA-Public Use
  Company Number: None

PATIENT
  Age: 90 Year
  Sex: Male
  Weight: 97.5 kg

DRUGS (2)
  1. LEUPROLIDE ACETATE. [Suspect]
     Active Substance: LEUPROLIDE ACETATE
     Dates: end: 20151229
  2. CASODEX [Suspect]
     Active Substance: BICALUTAMIDE
     Dates: end: 20160610

REACTIONS (7)
  - Diverticulum [None]
  - Fatigue [None]
  - Dyspnoea exertional [None]
  - Large intestine polyp [None]
  - Haemoglobin decreased [None]
  - Melaena [None]
  - Haematocrit decreased [None]

NARRATIVE: CASE EVENT DATE: 20160610
